FAERS Safety Report 18299346 (Version 2)
Quarter: 2020Q4

REPORT INFORMATION
  Report Type: Report from Study
  Country: None (occurrence: US)
  Receive Date: 20200923
  Receipt Date: 20201210
  Transmission Date: 20210113
  Serious: Yes (Other)
  Sender: FDA-Public Use
  Company Number: US-ABBVIE-18K-163-3114483-00

PATIENT
  Age: 60 Year
  Sex: Female

DRUGS (5)
  1. IMBRUVICA [Suspect]
     Active Substance: IBRUTINIB
     Route: 048
     Dates: start: 20180502
  2. IMBRUVICA [Suspect]
     Active Substance: IBRUTINIB
     Route: 048
     Dates: start: 20190112
  3. IMBRUVICA [Suspect]
     Active Substance: IBRUTINIB
     Indication: WALDENSTROM^S MACROGLOBULINAEMIA
     Route: 048
     Dates: start: 20180504
  4. IMBRUVICA [Suspect]
     Active Substance: IBRUTINIB
     Route: 048
     Dates: start: 201805
  5. IMBRUVICA [Suspect]
     Active Substance: IBRUTINIB
     Route: 048
     Dates: start: 20171208

REACTIONS (15)
  - Tinnitus [Not Recovered/Not Resolved]
  - Pruritus [Not Recovered/Not Resolved]
  - Pleural effusion [Not Recovered/Not Resolved]
  - Arthropathy [Not Recovered/Not Resolved]
  - Alopecia [Recovering/Resolving]
  - Lower respiratory tract infection [Unknown]
  - Diarrhoea [Recovering/Resolving]
  - Petechiae [Not Recovered/Not Resolved]
  - Weight increased [Unknown]
  - Insomnia [Not Recovered/Not Resolved]
  - Sinusitis [Unknown]
  - Arthropod bite [Not Recovered/Not Resolved]
  - Traumatic haematoma [Unknown]
  - Fatigue [Unknown]
  - Onychoclasis [Recovering/Resolving]

NARRATIVE: CASE EVENT DATE: 202011
